FAERS Safety Report 12076863 (Version 8)
Quarter: 2018Q3

REPORT INFORMATION
  Report Type: Report from Study
  Country: JP (occurrence: JP)
  Receive Date: 20160215
  Receipt Date: 20180807
  Transmission Date: 20181010
  Serious: Yes (Disabling)
  Sender: FDA-Public Use
  Company Number: JP-ASTELLAS-2010JP003595

PATIENT
  Age: 15 Year
  Sex: Female
  Weight: 63 kg

DRUGS (94)
  1. TACROLIMUS. [Suspect]
     Active Substance: TACROLIMUS
     Indication: LUPUS NEPHRITIS
     Route: 048
     Dates: start: 20080515, end: 20080519
  2. PREDNISOLONE. [Suspect]
     Active Substance: PREDNISOLONE
     Route: 048
     Dates: start: 20100830, end: 20100926
  3. PREDNISOLONE. [Suspect]
     Active Substance: PREDNISOLONE
     Route: 048
     Dates: start: 20110704, end: 20110731
  4. PREDNISOLONE. [Suspect]
     Active Substance: PREDNISOLONE
     Route: 048
     Dates: start: 20160531, end: 20160627
  5. PREDNISOLONE. [Suspect]
     Active Substance: PREDNISOLONE
     Route: 048
     Dates: start: 20170302, end: 20170331
  6. METHYLPREDNISOLONE. [Suspect]
     Active Substance: METHYLPREDNISOLONE
     Route: 048
     Dates: start: 20080604, end: 20080611
  7. METHYLPREDNISOLONE. [Suspect]
     Active Substance: METHYLPREDNISOLONE
     Route: 048
     Dates: start: 20080820, end: 20080916
  8. NU?LOTAN [Concomitant]
     Active Substance: LOSARTAN POTASSIUM
     Route: 048
     Dates: start: 20110411, end: 20121119
  9. BACTRAMIN [Concomitant]
     Active Substance: SULFAMETHOXAZOLE\TRIMETHOPRIM
     Indication: PROPHYLAXIS
     Route: 048
     Dates: start: 20080526, end: 20090616
  10. IMURAN [Concomitant]
     Active Substance: AZATHIOPRINE
     Route: 048
     Dates: start: 20101220, end: 20121118
  11. RIVOTRIL [Concomitant]
     Active Substance: CLONAZEPAM
     Indication: ESSENTIAL TREMOR
     Dosage: 0.5 MG, ONCE DAILY
     Route: 048
     Dates: start: 20110509, end: 20120605
  12. PREDNISOLONE. [Suspect]
     Active Substance: PREDNISOLONE
     Route: 048
     Dates: start: 20090729, end: 20090915
  13. PREDNISOLONE. [Suspect]
     Active Substance: PREDNISOLONE
     Route: 048
     Dates: start: 20110509, end: 20110605
  14. PREDNISOLONE. [Suspect]
     Active Substance: PREDNISOLONE
     Route: 048
     Dates: start: 20160425, end: 20160530
  15. PREDNISOLONE. [Suspect]
     Active Substance: PREDNISOLONE
     Route: 048
     Dates: start: 20160628, end: 20160725
  16. PREDNISOLONE. [Suspect]
     Active Substance: PREDNISOLONE
     Route: 048
     Dates: start: 20160818, end: 20160912
  17. PREDNISOLONE. [Suspect]
     Active Substance: PREDNISOLONE
     Route: 048
     Dates: start: 20160913, end: 20161107
  18. PREDNISOLONE. [Suspect]
     Active Substance: PREDNISOLONE
     Route: 048
     Dates: start: 20161108, end: 20170111
  19. PREDNISOLONE. [Suspect]
     Active Substance: PREDNISOLONE
     Route: 048
     Dates: start: 20170502
  20. METHYLPREDNISOLONE. [Suspect]
     Active Substance: METHYLPREDNISOLONE
     Route: 048
     Dates: start: 20080917, end: 20081019
  21. METHYLPREDNISOLONE. [Suspect]
     Active Substance: METHYLPREDNISOLONE
     Route: 048
     Dates: start: 20081119, end: 20081125
  22. NU?LOTAN [Concomitant]
     Active Substance: LOSARTAN POTASSIUM
     Route: 048
     Dates: start: 20080604, end: 20080701
  23. BENET [Concomitant]
     Active Substance: RISEDRONATE SODIUM
     Indication: OSTEOPOROSIS
     Route: 048
     Dates: start: 20090218, end: 20090616
  24. TRYPTANOL [Concomitant]
     Active Substance: AMITRIPTYLINE
     Route: 048
     Dates: start: 20080520, end: 20081019
  25. RIZE [Concomitant]
     Active Substance: CLOTIAZEPAM
     Indication: DEPRESSION
     Route: 048
     Dates: start: 20080619, end: 20080715
  26. LIPOVAS [Concomitant]
     Active Substance: PRAVASTATIN SODIUM
     Indication: HYPERLIPIDAEMIA
     Route: 048
     Dates: start: 20080820, end: 20090728
  27. IMURAN [Concomitant]
     Active Substance: AZATHIOPRINE
     Indication: LUPUS NEPHRITIS
     Route: 048
     Dates: start: 20101004, end: 20101121
  28. GASLON [Concomitant]
     Active Substance: IRSOGLADINE MALEATE
     Indication: PROPHYLAXIS
     Route: 048
     Dates: start: 20120213, end: 20121225
  29. LOXONIN [Concomitant]
     Active Substance: LOXOPROFEN SODIUM
     Indication: ADVERSE EVENT
     Route: 048
     Dates: start: 20121226
  30. ENDOXAN                            /00021101/ [Concomitant]
     Active Substance: CYCLOPHOSPHAMIDE
     Indication: PRODUCT USED FOR UNKNOWN INDICATION
     Dosage: UNK UNK, UNKNOWN FREQ.
     Route: 065
  31. PREDNISOLONE. [Suspect]
     Active Substance: PREDNISOLONE
     Route: 048
     Dates: start: 20090617, end: 20090728
  32. PREDNISOLONE. [Suspect]
     Active Substance: PREDNISOLONE
     Route: 048
     Dates: start: 20091111, end: 20100117
  33. PREDNISOLONE. [Suspect]
     Active Substance: PREDNISOLONE
     Route: 048
     Dates: start: 20100215, end: 20100314
  34. PREDNISOLONE. [Suspect]
     Active Substance: PREDNISOLONE
     Route: 048
     Dates: start: 20110411, end: 20110508
  35. PREDNISOLONE. [Suspect]
     Active Substance: PREDNISOLONE
     Route: 048
     Dates: start: 20140303, end: 20140609
  36. PREDNISOLONE. [Suspect]
     Active Substance: PREDNISOLONE
     Route: 048
     Dates: start: 20140610, end: 20140804
  37. WARFARIN                           /00014803/ [Concomitant]
     Active Substance: WARFARIN
     Route: 048
     Dates: start: 20090121, end: 20090728
  38. WARFARIN                           /00014803/ [Concomitant]
     Active Substance: WARFARIN
     Route: 048
     Dates: start: 20090824, end: 20141022
  39. GASLON [Concomitant]
     Active Substance: IRSOGLADINE MALEATE
     Route: 048
     Dates: start: 20121226
  40. LOXONIN [Concomitant]
     Active Substance: LOXOPROFEN SODIUM
     Indication: DISEASE COMPLICATION
  41. TACROLIMUS. [Suspect]
     Active Substance: TACROLIMUS
     Indication: BLOOD IMMUNOGLOBULIN G INCREASED
     Route: 048
     Dates: start: 20080520, end: 20111120
  42. PREDNISOLONE. [Suspect]
     Active Substance: PREDNISOLONE
     Route: 048
     Dates: start: 20090121, end: 20090217
  43. PREDNISOLONE. [Suspect]
     Active Substance: PREDNISOLONE
     Route: 048
     Dates: start: 20110801, end: 20111120
  44. PREDNISOLONE. [Suspect]
     Active Substance: PREDNISOLONE
     Route: 048
     Dates: start: 20140108, end: 20140302
  45. PREDNISOLONE. [Suspect]
     Active Substance: PREDNISOLONE
     Route: 048
     Dates: start: 20140805, end: 20160316
  46. PREDNISOLONE. [Suspect]
     Active Substance: PREDNISOLONE
     Route: 048
     Dates: start: 20170401, end: 20170501
  47. METHYLPREDNISOLONE. [Suspect]
     Active Substance: METHYLPREDNISOLONE
     Route: 048
     Dates: start: 20081126, end: 20081221
  48. METHYLPREDNISOLONE. [Suspect]
     Active Substance: METHYLPREDNISOLONE
     Route: 048
     Dates: start: 20081222, end: 20090120
  49. PARIET [Concomitant]
     Active Substance: RABEPRAZOLE SODIUM
     Indication: PROPHYLAXIS
     Route: 048
     Dates: start: 20080820
  50. ONEALFA [Concomitant]
     Active Substance: ALFACALCIDOL
     Indication: PROPHYLAXIS
     Dosage: 0.5 ?G, ONCE DAILY
     Route: 048
  51. WARFARIN                           /00014803/ [Concomitant]
     Active Substance: WARFARIN
     Indication: PROPHYLAXIS
     Route: 048
     Dates: end: 20090120
  52. IMURAN [Concomitant]
     Active Substance: AZATHIOPRINE
     Route: 048
     Dates: start: 20121119, end: 20130120
  53. IMURAN [Concomitant]
     Active Substance: AZATHIOPRINE
     Route: 048
     Dates: start: 20130121
  54. LYRICA [Concomitant]
     Active Substance: PREGABALIN
     Indication: HYPOAESTHESIA
     Dosage: UNK UNK, UNKNOWN FREQ.
     Route: 048
     Dates: start: 20110801
  55. TACROLIMUS. [Suspect]
     Active Substance: TACROLIMUS
     Route: 048
     Dates: start: 20111121
  56. PREDNISOLONE. [Suspect]
     Active Substance: PREDNISOLONE
     Indication: LUPUS NEPHRITIS
     Route: 048
     Dates: end: 20080520
  57. PREDNISOLONE. [Suspect]
     Active Substance: PREDNISOLONE
     Route: 048
     Dates: start: 20090916, end: 20091020
  58. PREDNISOLONE. [Suspect]
     Active Substance: PREDNISOLONE
     Route: 048
     Dates: start: 20091021, end: 20091110
  59. PREDNISOLONE. [Suspect]
     Active Substance: PREDNISOLONE
     Route: 048
     Dates: start: 20110606, end: 20110703
  60. PREDNISOLONE. [Suspect]
     Active Substance: PREDNISOLONE
     Route: 048
     Dates: start: 20160726, end: 20160817
  61. METHYLPREDNISOLONE. [Suspect]
     Active Substance: METHYLPREDNISOLONE
     Route: 048
     Dates: start: 20081020, end: 20081118
  62. NU?LOTAN [Concomitant]
     Active Substance: LOSARTAN POTASSIUM
     Route: 048
     Dates: start: 20080702, end: 20110410
  63. MUCOSTA [Concomitant]
     Active Substance: REBAMIPIDE
     Indication: GASTRIC ULCER
     Route: 048
     Dates: end: 20080819
  64. SELBEX [Concomitant]
     Active Substance: TEPRENONE
     Indication: GASTRIC ULCER
     Route: 048
     Dates: start: 20080820, end: 20120212
  65. TRYPTANOL [Concomitant]
     Active Substance: AMITRIPTYLINE
     Indication: DEPRESSION
     Route: 048
     Dates: end: 20080519
  66. PREDNISOLONE. [Suspect]
     Active Substance: PREDNISOLONE
     Route: 048
     Dates: start: 20090218, end: 20090317
  67. PREDNISOLONE. [Suspect]
     Active Substance: PREDNISOLONE
     Route: 048
     Dates: start: 20090513, end: 20090616
  68. PREDNISOLONE. [Suspect]
     Active Substance: PREDNISOLONE
     Route: 048
     Dates: start: 20100315, end: 20100829
  69. WARFARIN                           /00014803/ [Concomitant]
     Active Substance: WARFARIN
     Route: 048
     Dates: start: 20090729, end: 20090823
  70. WARFARIN                           /00014803/ [Concomitant]
     Active Substance: WARFARIN
     Route: 048
     Dates: start: 20141023
  71. WYPAX [Concomitant]
     Active Substance: LORAZEPAM
     Indication: DEPRESSION
     Route: 048
     Dates: end: 20080916
  72. FOSAMAC [Concomitant]
     Active Substance: ALENDRONATE SODIUM
     Indication: PROPHYLAXIS
     Route: 048
     Dates: start: 20100118
  73. FERROMIA                           /00023520/ [Concomitant]
     Indication: IRON DEFICIENCY ANAEMIA
     Route: 048
     Dates: start: 20120625, end: 20130925
  74. ENDOXAN                            /00021102/ [Concomitant]
     Active Substance: CYCLOPHOSPHAMIDE
     Indication: PRODUCT USED FOR UNKNOWN INDICATION
     Dosage: UNK UNK, UNKNOWN FREQ.
     Route: 065
  75. PREDNISOLONE. [Suspect]
     Active Substance: PREDNISOLONE
     Indication: PYREXIA
     Route: 048
     Dates: start: 20080521, end: 20080527
  76. METHYLPREDNISOLONE. [Suspect]
     Active Substance: METHYLPREDNISOLONE
     Indication: LUPUS NEPHRITIS
     Route: 048
     Dates: start: 20080528, end: 20080603
  77. METHYLPREDNISOLONE. [Suspect]
     Active Substance: METHYLPREDNISOLONE
     Route: 048
     Dates: start: 20080716, end: 20080819
  78. TRAMCET [Suspect]
     Active Substance: ACETAMINOPHEN\TRAMADOL
     Indication: OSTEONECROSIS
     Dosage: UNK UNK, UNKNOWN FREQ.
     Route: 065
     Dates: end: 20080603
  79. NU?LOTAN [Concomitant]
     Active Substance: LOSARTAN POTASSIUM
     Indication: LUPUS NEPHRITIS
     Route: 048
     Dates: start: 20080528, end: 20080603
  80. CRESTOR [Concomitant]
     Active Substance: ROSUVASTATIN CALCIUM
     Indication: HYPERLIPIDAEMIA
     Route: 048
     Dates: start: 20080606, end: 20080819
  81. IMURAN [Concomitant]
     Active Substance: AZATHIOPRINE
     Indication: PYREXIA
     Route: 048
     Dates: start: 20101122, end: 20101219
  82. VOLTAREN [Concomitant]
     Active Substance: DICLOFENAC SODIUM
     Indication: OSTEONECROSIS
     Route: 048
     Dates: start: 20100510, end: 20110828
  83. PREDNISOLONE. [Suspect]
     Active Substance: PREDNISOLONE
     Route: 048
     Dates: start: 20090318, end: 20090512
  84. PREDNISOLONE. [Suspect]
     Active Substance: PREDNISOLONE
     Route: 048
     Dates: start: 20100118, end: 20100214
  85. PREDNISOLONE. [Suspect]
     Active Substance: PREDNISOLONE
     Route: 048
     Dates: start: 20100926, end: 20101121
  86. PREDNISOLONE. [Suspect]
     Active Substance: PREDNISOLONE
     Route: 048
     Dates: start: 20101122, end: 20110306
  87. PREDNISOLONE. [Suspect]
     Active Substance: PREDNISOLONE
     Route: 048
     Dates: start: 20110307, end: 20110410
  88. PREDNISOLONE. [Suspect]
     Active Substance: PREDNISOLONE
     Route: 048
     Dates: start: 20111121, end: 20140107
  89. PREDNISOLONE. [Suspect]
     Active Substance: PREDNISOLONE
     Route: 048
     Dates: start: 20170112, end: 20170301
  90. METHYLPREDNISOLONE. [Suspect]
     Active Substance: METHYLPREDNISOLONE
     Route: 048
     Dates: start: 20080612, end: 20080618
  91. METHYLPREDNISOLONE. [Suspect]
     Active Substance: METHYLPREDNISOLONE
     Route: 048
     Dates: start: 20080619, end: 20080701
  92. METHYLPREDNISOLONE. [Suspect]
     Active Substance: METHYLPREDNISOLONE
     Route: 048
     Dates: start: 20080702, end: 20080715
  93. TRAMCET [Suspect]
     Active Substance: ACETAMINOPHEN\TRAMADOL
     Dosage: 4 TABLETS, ONCE DAILY
     Route: 048
     Dates: start: 20121022, end: 20130726
  94. VOLTAREN [Concomitant]
     Active Substance: DICLOFENAC SODIUM
     Indication: OSTEONECROSIS
     Route: 048
     Dates: start: 20110829, end: 20121021

REACTIONS (8)
  - Essential tremor [Recovering/Resolving]
  - Osteonecrosis [Not Recovered/Not Resolved]
  - Hypoaesthesia [Recovering/Resolving]
  - Nausea [Recovering/Resolving]
  - Prescribed overdose [Unknown]
  - Pyrexia [Recovered/Resolved]
  - Blood immunoglobulin G increased [Recovered/Resolved]
  - Osteonecrosis [Not Recovered/Not Resolved]

NARRATIVE: CASE EVENT DATE: 20080716
